FAERS Safety Report 7885004-9 (Version None)
Quarter: 2011Q4

REPORT INFORMATION
  Report Type: 
  Country: None (occurrence: None)
  Receive Date: 20111102
  Receipt Date: 20111031
  Transmission Date: 20120403
  Serious: Yes (Death, Other)
  Sender: FDA-Public Use
  Company Number: VE-PFIZER INC-2011261297

PATIENT
  Age: 74 Year
  Sex: Female

DRUGS (4)
  1. HYZAAR [Concomitant]
     Route: 048
  2. LIPITOR [Suspect]
     Indication: HYPERCHOLESTEROLAEMIA
     Dosage: UNK
     Route: 048
     Dates: start: 20080101
  3. ADALAT [Concomitant]
  4. JANUMET [Concomitant]

REACTIONS (2)
  - CEREBROVASCULAR ACCIDENT [None]
  - URINARY TRACT INFECTION [None]
